FAERS Safety Report 4594849-2 (Version None)
Quarter: 2005Q1

REPORT INFORMATION
  Report Type: 
  Country: None (occurrence: None)
  Receive Date: 20050223
  Receipt Date: 20050214
  Transmission Date: 20050727
  Serious: Yes (Hospitalization)
  Sender: FDA-Public Use
  Company Number: 2005010775

PATIENT
  Age: 31 Year
  Sex: Female

DRUGS (3)
  1. DOSTINEX [Suspect]
     Indication: ILL-DEFINED DISORDER
     Dosage: 2 DOSE FORMS (INTERVAL: EVERY WEEK), ORAL
     Route: 048
     Dates: start: 20001215, end: 20041109
  2. BROMOCRIPTINE MESYLATE [Suspect]
     Indication: HYPOTHALAMO-PITUITARY DISORDERS
     Dosage: ORAL
     Route: 048
     Dates: start: 19960115, end: 19970715
  3. QUINAGOLIDE (QUINAGOLIDE) [Suspect]
     Indication: ILL-DEFINED DISORDER
     Dosage: ORAL
     Route: 048
     Dates: start: 19970715, end: 19991015

REACTIONS (2)
  - BENIGN BREAST NEOPLASM [None]
  - PREGNANCY [None]
